FAERS Safety Report 5094449-4 (Version None)
Quarter: 2006Q3

REPORT INFORMATION
  Report Type: 
  Country: None (occurrence: None)
  Receive Date: 20060731
  Receipt Date: 20060424
  Transmission Date: 20061208
  Serious: No
  Sender: FDA-Public Use
  Company Number: 2006PV012702

PATIENT
  Age: 52 Year
  Sex: Female
  Weight: 78.4723 kg

DRUGS (6)
  1. BYETTA [Suspect]
     Indication: DIABETES MELLITUS NON-INSULIN-DEPENDENT
     Dosage: 5 MCG;SC
     Route: 058
     Dates: start: 20060321
  2. AVANDIA [Concomitant]
  3. METFORMIN HCL [Concomitant]
  4. THYROID MEDICINE [Concomitant]
  5. PROMETRIN [Concomitant]
  6. ESTROGENS SOL/INJ [Concomitant]

REACTIONS (3)
  - BACK PAIN [None]
  - BREAST PAIN [None]
  - POSTMENOPAUSAL HAEMORRHAGE [None]
